FAERS Safety Report 24178563 (Version 1)
Quarter: 2024Q3

REPORT INFORMATION
  Report Type: Report from Study
  Country: US (occurrence: US)
  Receive Date: 20240806
  Receipt Date: 20240806
  Transmission Date: 20241016
  Serious: Yes (Hospitalization)
  Sender: BAYER
  Company Number: US-BAYER-2024A111541

PATIENT
  Age: 68 Year
  Sex: Female

DRUGS (3)
  1. ADEMPAS [Suspect]
     Active Substance: RIOCIGUAT
     Indication: Pulmonary arterial hypertension
     Dosage: UNK
  2. ADEMPAS [Suspect]
     Active Substance: RIOCIGUAT
     Indication: Pulmonary arterial hypertension
     Dosage: 2.5 MG, TID
     Route: 048
     Dates: start: 201707
  3. UPTRAVI [Concomitant]
     Active Substance: SELEXIPAG

REACTIONS (3)
  - Orthostatic hypotension [None]
  - Fall [None]
  - Headache [None]

NARRATIVE: CASE EVENT DATE: 20240723
